FAERS Safety Report 11195363 (Version 1)
Quarter: 2015Q2

REPORT INFORMATION
  Report Type: Spontaneous
  Country: US (occurrence: None)
  Receive Date: 20150603
  Receipt Date: 20150603
  Transmission Date: 20150821
  Serious: No
  Sender: FDA-Public Use
  Company Number: 2014TASUS000446

PATIENT
  Age: 39 Year
  Sex: Female

DRUGS (2)
  1. MELATONIN [Concomitant]
     Active Substance: MELATONIN
  2. HETLIOZ [Suspect]
     Active Substance: TASIMELTEON
     Indication: CIRCADIAN RHYTHM SLEEP DISORDER
     Route: 048
     Dates: start: 20140627, end: 201504

REACTIONS (2)
  - Middle insomnia [None]
  - Drug ineffective [None]

NARRATIVE: CASE EVENT DATE: 20140627
